FAERS Safety Report 16262913 (Version 1)
Quarter: 2019Q2

REPORT INFORMATION
  Report Type: Spontaneous
  Country: US (occurrence: US)
  Receive Date: 20190502
  Receipt Date: 20190502
  Transmission Date: 20190711
  Serious: Yes (Other)
  Sender: FDA-Public Use
  Company Number: US-CONCORDIA PHARMACEUTICALS INC.-GSH201904-001264

PATIENT
  Age: 82 Year
  Sex: Male

DRUGS (1)
  1. CLONIDINE 0.1 MG [Suspect]
     Active Substance: CLONIDINE
     Indication: HYPERTENSION
     Dosage: ONCE DAILY (AT BED TIME) FOR ONE MONTH

REACTIONS (3)
  - Agitation [Unknown]
  - Alcohol interaction [Unknown]
  - Loss of consciousness [Unknown]
